FAERS Safety Report 10681886 (Version 1)
Quarter: 2014Q4

REPORT INFORMATION
  Report Type: Spontaneous
  Country: None (occurrence: None)
  Receive Date: 20141229
  Receipt Date: 20141229
  Transmission Date: 20150529
  Serious: Yes (Disabling)
  Sender: FDA-Public Use
  Company Number: None

PATIENT
  Age: 39 Year
  Sex: Female
  Weight: 49.9 kg

DRUGS (1)
  1. LEVOFLOXACIN 500MG [Suspect]
     Active Substance: LEVOFLOXACIN
     Dosage: 14 TABLET, ONCE DAILY, TAKEN BY MOUTH
     Route: 048
     Dates: start: 20140630

REACTIONS (9)
  - Vitreous floaters [None]
  - Eye pain [None]
  - Gastrointestinal tract irritation [None]
  - Contusion [None]
  - Paraesthesia [None]
  - Neuropathy peripheral [None]
  - Neuritis [None]
  - Tendonitis [None]
  - Night sweats [None]
